FAERS Safety Report 23472820 (Version 2)
Quarter: 2024Q1

REPORT INFORMATION
  Report Type: Report from Study
  Country: DE (occurrence: DE)
  Receive Date: 20240203
  Receipt Date: 20240219
  Transmission Date: 20240410
  Serious: Yes (Life-Threatening, Hospitalization, Other)
  Sender: FDA-Public Use
  Company Number: DE-UCBSA-2024001121

PATIENT
  Age: 79 Year
  Sex: Female

DRUGS (7)
  1. LEVETIRACETAM [Interacting]
     Active Substance: LEVETIRACETAM
     Indication: Epilepsy
     Dosage: 2000 MILLIGRAM
     Route: 065
  2. PANTOPRAZOLE [Interacting]
     Active Substance: PANTOPRAZOLE
     Indication: Product used for unknown indication
     Dosage: UNK
     Route: 065
  3. METHOTREXATE [Interacting]
     Active Substance: METHOTREXATE
     Indication: Rheumatoid arthritis
     Dosage: 7.5 MILLIGRAM, WEEKLY (QW)
     Route: 065
  4. METHOTREXATE [Interacting]
     Active Substance: METHOTREXATE
     Dosage: 15 MILLIGRAM, EVERY WEEK
     Route: 065
  5. NAPROXEN [Suspect]
     Active Substance: NAPROXEN
     Indication: Mucosal inflammation
     Dosage: UNK
     Route: 065
  6. ETORICOXIB [Concomitant]
     Active Substance: ETORICOXIB
     Indication: Product used for unknown indication
     Dosage: UNK
     Route: 065
  7. CANDESARTAN [Concomitant]
     Active Substance: CANDESARTAN
     Indication: Product used for unknown indication
     Dosage: UNK
     Route: 065

REACTIONS (7)
  - Myelosuppression [Recovered/Resolved]
  - Toxicity to various agents [Recovered/Resolved]
  - Thrombocytopenia [Recovered/Resolved]
  - Leukopenia [Recovered/Resolved]
  - Drug interaction [Recovered/Resolved]
  - Mucosal inflammation [Recovered/Resolved]
  - Disease risk factor [Recovered/Resolved]
